FAERS Safety Report 8174283-9 (Version None)
Quarter: 2012Q1

REPORT INFORMATION
  Report Type: 
  Country: None (occurrence: None)
  Receive Date: 20120229
  Receipt Date: 20120223
  Transmission Date: 20120608
  Serious: Yes (Other)
  Sender: FDA-Public Use
  Company Number: FR-BAYER-2012-018686

PATIENT
  Age: 57 Year
  Sex: Male

DRUGS (1)
  1. LEVITRA [Suspect]
     Dosage: 10 MG, UNK
     Route: 048

REACTIONS (4)
  - ABDOMINAL PAIN UPPER [None]
  - OESOPHAGEAL SPASM [None]
  - DYSPEPSIA [None]
  - OESOPHAGEAL DISORDER [None]
